FAERS Safety Report 11427316 (Version 2)
Quarter: 2015Q3

REPORT INFORMATION
  Report Type: Spontaneous
  Country: US (occurrence: None)
  Receive Date: 20150826
  Receipt Date: 20150909
  Transmission Date: 20151125
  Serious: Yes (Other)
  Sender: FDA-Public Use
  Company Number: 2015HINSPO0695

PATIENT

DRUGS (1)
  1. ARIPIPRAZOLE (ARIPIPRAZOLE) TABLET, 5MG [Suspect]
     Active Substance: ARIPIPRAZOLE
     Indication: PRODUCT USED FOR UNKNOWN INDICATION
     Route: 048

REACTIONS (4)
  - Drug ineffective [None]
  - Self injurious behaviour [None]
  - Physical assault [None]
  - Abnormal behaviour [None]
